FAERS Safety Report 5802098-2 (Version None)
Quarter: 2008Q3

REPORT INFORMATION
  Report Type: 
  Country: None (occurrence: None)
  Receive Date: 20080707
  Receipt Date: 20080627
  Transmission Date: 20090109
  Serious: Yes (Other)
  Sender: FDA-Public Use
  Company Number: PHHY2008JP12553

PATIENT
  Age: 84 Year

DRUGS (1)
  1. DIOVAN [Suspect]
     Dosage: UNK
     Route: 048
     Dates: start: 20080528

REACTIONS (2)
  - BLINDNESS UNILATERAL [None]
  - MACULAR DEGENERATION [None]
